FAERS Safety Report 20632085 (Version 1)
Quarter: 2022Q1

REPORT INFORMATION
  Report Type: Spontaneous
  Country: US (occurrence: US)
  Receive Date: 20220324
  Receipt Date: 20220324
  Transmission Date: 20220423
  Serious: No
  Sender: FDA-Public Use
  Company Number: US-PFIZER INC-2021456655

PATIENT
  Age: 77 Year
  Sex: Female

DRUGS (2)
  1. TOZINAMERAN [Interacting]
     Active Substance: TOZINAMERAN
     Indication: COVID-19 immunisation
     Dosage: DOSE 2, SINGLE
     Dates: start: 20210218, end: 20210218
  2. RITUXIMAB [Interacting]
     Active Substance: RITUXIMAB

REACTIONS (2)
  - B-lymphocyte count decreased [Unknown]
  - Potentiating drug interaction [Unknown]
